FAERS Safety Report 5312699-6 (Version None)
Quarter: 2007Q2

REPORT INFORMATION
  Report Type: 
  Country: None (occurrence: None)
  Receive Date: 20070430
  Receipt Date: 20060718
  Transmission Date: 20071010
  Serious: No
  Sender: FDA-Public Use
  Company Number: 2006CG00686

PATIENT
  Age: 23324 Day
  Sex: Male
  Weight: 87 kg

DRUGS (2)
  1. NEXIUM [Suspect]
     Indication: OESOPHAGEAL ULCER
     Route: 048
     Dates: start: 20060301
  2. MOTILIUM [Concomitant]
     Indication: GASTROOESOPHAGEAL REFLUX DISEASE
     Dates: start: 20060301

REACTIONS (1)
  - HYPERURICAEMIA [None]
